FAERS Safety Report 6253153-7 (Version None)
Quarter: 2009Q2

REPORT INFORMATION
  Report Type: 
  Country: None (occurrence: None)
  Receive Date: 20090626
  Receipt Date: 20080903
  Transmission Date: 20091009
  Serious: Yes (Hospitalization)
  Sender: FDA-Public Use
  Company Number: 585471

PATIENT
  Age: 51 Year
  Sex: Female
  Weight: 72.3 kg

DRUGS (6)
  1. XELODA [Suspect]
     Indication: BREAST CANCER METASTATIC
     Dosage: ORAL
     Route: 048
     Dates: start: 20080218
  2. BEVACIZUMAB (BEVACIZUMAB) [Suspect]
     Indication: BREAST CANCER METASTATIC
     Dosage: 15 MG/KG     INTRAVENOUS
     Route: 042
     Dates: start: 20080311, end: 20080422
  3. XELODA [Suspect]
     Indication: DRUG USE FOR UNKNOWN INDICATION
     Dates: start: 20080310, end: 20080623
  4. HYDROCHLOROTHIAZIDE [Concomitant]
  5. PERCOCET (OXYCODONE/PARACETAMOL) [Concomitant]
  6. VERELAN (VERAPAMIL) [Concomitant]

REACTIONS (5)
  - CARDIAC FAILURE CONGESTIVE [None]
  - COUGH [None]
  - DYSPNOEA [None]
  - EJECTION FRACTION DECREASED [None]
  - PLEURAL EFFUSION [None]
